FAERS Safety Report 13677902 (Version 1)
Quarter: 2017Q2

REPORT INFORMATION
  Report Type: Spontaneous
  Country: CO (occurrence: US)
  Receive Date: 20170620
  Receipt Date: 20170620
  Transmission Date: 20170830
  Serious: Yes (Disabling)
  Sender: FDA-Public Use
  Company Number: None

PATIENT
  Age: 1 Month
  Sex: Male
  Weight: 76 kg

DRUGS (1)
  1. GEMFIBROZILO [Suspect]
     Active Substance: GEMFIBROZIL
     Indication: BLOOD TRIGLYCERIDES INCREASED
     Dosage: TWICE A DAY ORAL
     Route: 048
     Dates: start: 20170601, end: 20170620

REACTIONS (3)
  - Therapy cessation [None]
  - Renal pain [None]
  - Abdominal pain upper [None]

NARRATIVE: CASE EVENT DATE: 20170620
